FAERS Safety Report 11908654 (Version 1)
Quarter: 2016Q1

REPORT INFORMATION
  Report Type: Spontaneous
  Country: CL (occurrence: CL)
  Receive Date: 20160111
  Receipt Date: 20160111
  Transmission Date: 20160526
  Serious: Yes (Other)
  Sender: FDA-Public Use
  Company Number: CL-009507513-1601CHL001438

PATIENT
  Age: 34 Year
  Sex: Female

DRUGS (1)
  1. NUVARING [Suspect]
     Active Substance: ETHINYL ESTRADIOL\ETONOGESTREL
     Dosage: UNK
     Route: 067

REACTIONS (4)
  - Withdrawal bleed [Recovered/Resolved]
  - Polymenorrhoea [Unknown]
  - Incorrect drug administration duration [Unknown]
  - Surgery [Unknown]

NARRATIVE: CASE EVENT DATE: 20151217
